FAERS Safety Report 6451598-3 (Version None)
Quarter: 2009Q4

REPORT INFORMATION
  Report Type: 
  Country: None (occurrence: None)
  Receive Date: 20091123
  Receipt Date: 20091111
  Transmission Date: 20100525
  Serious: Yes (Other)
  Sender: FDA-Public Use
  Company Number: PHHY2009DE29035

PATIENT
  Sex: Female

DRUGS (4)
  1. RASILEZ HCT [Suspect]
     Indication: HYPERTENSION
     Dosage: 150/12.5MG, QD
     Dates: start: 20090515, end: 20090527
  2. RASILEZ HCT [Suspect]
     Dosage: 300/12.5MG, QD
     Dates: start: 20090528, end: 20090712
  3. RASILEZ HCT [Suspect]
     Dosage: 150/6.25MG, QD
     Dates: start: 20090713, end: 20090901
  4. LEVOTHYROXINE SODIUM [Concomitant]

REACTIONS (3)
  - BLOOD PRESSURE FLUCTUATION [None]
  - INTRAOCULAR PRESSURE INCREASED [None]
  - VISION BLURRED [None]
